FAERS Safety Report 18542531 (Version 1)
Quarter: 2020Q4

REPORT INFORMATION
  Report Type: Spontaneous
  Country: US (occurrence: US)
  Receive Date: 20201125
  Receipt Date: 20201125
  Transmission Date: 20210114
  Serious: Yes (Hospitalization, Other)
  Sender: FDA-Public Use
  Company Number: US-PACIRA-202000510

PATIENT

DRUGS (3)
  1. ACETAMINOPHEN. [Concomitant]
     Active Substance: ACETAMINOPHEN
     Indication: PAIN MANAGEMENT
     Dosage: NOT PROVIDED
  2. EXPAREL [Suspect]
     Active Substance: BUPIVACAINE
     Indication: NERVE BLOCK
     Dosage: NOT PROVIDED
  3. GABAPENTIN. [Concomitant]
     Active Substance: GABAPENTIN
     Indication: PAIN MANAGEMENT
     Dosage: NOT PROVIDED

REACTIONS (7)
  - Transfusion [Unknown]
  - Urinary tract infection [Unknown]
  - Abdominal infection [Unknown]
  - Vomiting [Recovered/Resolved]
  - Hospitalisation [Unknown]
  - Pancreatic leak [Unknown]
  - Impaired gastric emptying [Unknown]
